FAERS Safety Report 12538703 (Version 1)
Quarter: 2016Q3

REPORT INFORMATION
  Report Type: Spontaneous
  Country: US (occurrence: US)
  Receive Date: 20160708
  Receipt Date: 20160708
  Transmission Date: 20161109
  Serious: Yes (Other)
  Sender: FDA-Public Use
  Company Number: US-CIPLA LTD.-2013US00371

PATIENT

DRUGS (4)
  1. IXABEPILONE [Suspect]
     Active Substance: IXABEPILONE
     Indication: NON-SMALL CELL LUNG CANCER
     Dosage: 30 MG/M2, ON DAY 1 OF EACH 21 DAY CYCLE
     Route: 065
  2. DEXAMETHASONE. [Concomitant]
     Active Substance: DEXAMETHASONE
     Indication: PREMEDICATION
     Dosage: UNK
     Route: 065
  3. CARBOPLATIN. [Suspect]
     Active Substance: CARBOPLATIN
     Indication: NON-SMALL CELL LUNG CANCER
     Dosage: AUC 6, ON DAY 1 OF EACH 21 DAY CYCLE
     Route: 042
  4. BEVACIZUMAB [Suspect]
     Active Substance: BEVACIZUMAB
     Indication: NON-SMALL CELL LUNG CANCER
     Dosage: 15 MG/M2, ON DAY 1 OF EACH 21 DAY CYCLE
     Route: 042

REACTIONS (1)
  - Atrial fibrillation [Unknown]
